FAERS Safety Report 12116486 (Version 2)
Quarter: 2016Q1

REPORT INFORMATION
  Report Type: Spontaneous
  Country: BR (occurrence: BR)
  Receive Date: 20160225
  Receipt Date: 20160307
  Transmission Date: 20160526
  Serious: Yes (Hospitalization, Other)
  Sender: FDA-Public Use
  Company Number: BR-ABBVIE-16P-020-1568376-00

PATIENT
  Age: 2 Year
  Sex: Female
  Weight: 16 kg

DRUGS (3)
  1. DEPAKENE [Suspect]
     Active Substance: VALPROIC ACID
     Route: 048
     Dates: end: 20160202
  2. DEPAKOTE [Suspect]
     Active Substance: DIVALPROEX SODIUM
     Indication: SEIZURE
     Route: 048
     Dates: start: 20160202
  3. DEPAKENE [Suspect]
     Active Substance: VALPROIC ACID
     Indication: SEIZURE
     Route: 048
     Dates: start: 20150826

REACTIONS (12)
  - Apnoea [Unknown]
  - Alopecia [Recovering/Resolving]
  - Medication residue present [Unknown]
  - Seizure [Unknown]
  - Pyrexia [Recovered/Resolved]
  - Vomiting [Not Recovered/Not Resolved]
  - Product taste abnormal [Unknown]
  - Off label use [Unknown]
  - Drug administered to patient of inappropriate age [Unknown]
  - Decreased appetite [Recovering/Resolving]
  - Pyrexia [Not Recovered/Not Resolved]
  - Incorrect dose administered [Unknown]

NARRATIVE: CASE EVENT DATE: 2015
